FAERS Safety Report 25242785 (Version 1)
Quarter: 2025Q2

REPORT INFORMATION
  Report Type: Report from Study
  Country: GB (occurrence: GB)
  Receive Date: 20250427
  Receipt Date: 20250427
  Transmission Date: 20250716
  Serious: Yes (Other)
  Sender: ABBVIE
  Company Number: GB-ABBVIE-6247762

PATIENT
  Sex: Female

DRUGS (1)
  1. SKYRIZI [Suspect]
     Active Substance: RISANKIZUMAB-RZAA
     Indication: Crohn^s disease
     Dosage: 360MG/2.4ML
     Route: 058

REACTIONS (1)
  - Cerebrovascular accident [Unknown]
